FAERS Safety Report 10530755 (Version 1)
Quarter: 2014Q4

REPORT INFORMATION
  Report Type: Spontaneous
  Country: US (occurrence: None)
  Receive Date: 20141020
  Receipt Date: 20141020
  Transmission Date: 20150528
  Serious: Yes (Other)
  Sender: FDA-Public Use
  Company Number: None

PATIENT
  Age: 33 Year
  Sex: Female
  Weight: 72.58 kg

DRUGS (1)
  1. FLUOXETINE [Suspect]
     Active Substance: FLUOXETINE\FLUOXETINE HYDROCHLORIDE
     Dosage: 1 DAILY ONCE DAILY TAKEN BY MOUTH
     Route: 048
     Dates: start: 20140903, end: 20141014

REACTIONS (2)
  - Drug ineffective [None]
  - Blepharospasm [None]

NARRATIVE: CASE EVENT DATE: 20140922
